FAERS Safety Report 9852513 (Version 1)
Quarter: 2014Q1

REPORT INFORMATION
  Report Type: Report from Study
  Country: RU (occurrence: RU)
  Receive Date: 20140129
  Receipt Date: 20140129
  Transmission Date: 20141002
  Serious: Yes (Other)
  Sender: FDA-Public Use
  Company Number: RU-BRISTOL-MYERS SQUIBB COMPANY-20071965

PATIENT
  Age: 17 Year
  Sex: Female

DRUGS (1)
  1. ARIPIPRAZOLE [Suspect]
     Indication: SCHIZOPHRENIA, DISORGANISED TYPE
     Route: 048
     Dates: start: 20130214, end: 20130505

REACTIONS (1)
  - Psychotic disorder [Recovered/Resolved]
